FAERS Safety Report 11952378 (Version 2)
Quarter: 2017Q1

REPORT INFORMATION
  Report Type: Spontaneous
  Country: US (occurrence: US)
  Receive Date: 20160125
  Receipt Date: 20170118
  Transmission Date: 20170428
  Serious: Yes (Death, Hospitalization)
  Sender: FDA-Public Use
  Company Number: US-PFIZER INC-2016038387

PATIENT
  Age: 85 Year
  Sex: Female
  Weight: 73 kg

DRUGS (19)
  1. FLUTICASONE PROPIONATE. [Concomitant]
     Active Substance: FLUTICASONE PROPIONATE
     Indication: NASAL DRYNESS
     Dosage: 1 DF, 1X/DAY, (10 AM), (1 SPRAY IN EACH NOSTRIL)
     Route: 045
     Dates: start: 20151022
  2. MIRALAX [Concomitant]
     Active Substance: POLYETHYLENE GLYCOL 3350
     Indication: CONSTIPATION
     Dosage: 1 DF, 1X/DAY, (10 AM)
     Route: 048
     Dates: start: 20151022
  3. PROMETHAZINE HCL [Concomitant]
     Active Substance: PROMETHAZINE HYDROCHLORIDE
     Indication: NAUSEA
     Dosage: 25 MG, AS NEEDED, (EVERY 6 HOURS)
     Route: 048
     Dates: start: 20151021
  4. METOPROLOL TARTRATE. [Concomitant]
     Active Substance: METOPROLOL TARTRATE
     Indication: HYPERTENSION
     Dosage: 50 MG, 2X/DAY, (10 AM, 10 PM)
     Route: 048
     Dates: start: 20150926
  5. LIPITOR [Concomitant]
     Active Substance: ATORVASTATIN CALCIUM
     Indication: HYPERLIPIDAEMIA
     Dosage: 40 MG, 1X/DAY, (10 EVE)
     Route: 048
     Dates: start: 20150926
  6. LORAZEPAM. [Concomitant]
     Active Substance: LORAZEPAM
     Indication: ANXIETY
     Dosage: 0.5 MG, AS NEEDED, (EVERY 8 HOURS)
     Route: 048
     Dates: start: 20150925
  7. CLARITIN [Concomitant]
     Active Substance: LORATADINE
     Indication: ANTIALLERGIC THERAPY
     Dosage: 10 MG, 1X/DAY, (10 AM)
     Route: 048
     Dates: start: 20151022
  8. DIGOXIN. [Concomitant]
     Active Substance: DIGOXIN
     Indication: CARDIAC DISORDER
     Dosage: 125 UG, 1X/DAY, (10 AM)
     Route: 048
     Dates: start: 20150926
  9. FERROUS SULFATE. [Concomitant]
     Active Substance: FERROUS SULFATE
     Indication: ANAEMIA
     Dosage: 325 MG, 1X/DAY, (WITH BREAKFAST), (10 AM) (65 FE) MG
     Route: 048
     Dates: start: 20150926
  10. NOVOLOG [Concomitant]
     Active Substance: INSULIN ASPART
     Indication: TYPE 2 DIABETES MELLITUS
     Dosage: UNK
     Dates: start: 20150925
  11. WARFARIN SODIUM. [Concomitant]
     Active Substance: WARFARIN SODIUM
     Indication: CHRONIC OBSTRUCTIVE PULMONARY DISEASE
  12. SENOKOT [Concomitant]
     Active Substance: SENNOSIDES
     Indication: CONSTIPATION
     Dosage: 8.6 MG, 2X/DAY
     Route: 048
     Dates: start: 20151022
  13. OMEPRAZOLE. [Concomitant]
     Active Substance: OMEPRAZOLE
     Indication: GASTROOESOPHAGEAL REFLUX DISEASE
     Dosage: 10 ML, 1X/DAY, (6 PM)
     Route: 048
     Dates: start: 20151022
  14. WARFARIN SODIUM. [Concomitant]
     Active Substance: WARFARIN SODIUM
     Indication: CEREBROVASCULAR DISORDER
     Dosage: 3 MG, 1X/DAY, (8 PM)
     Route: 048
     Dates: start: 20151109
  15. CYANOCOBALAMIN. [Concomitant]
     Active Substance: CYANOCOBALAMIN
     Dosage: 1 ML, MONTHLY, (10AM)
     Route: 030
     Dates: start: 20151026
  16. SYNTHROID [Concomitant]
     Active Substance: LEVOTHYROXINE SODIUM
     Indication: HYPOTHYROIDISM
     Dosage: 88 UG, 1X/DAY, (6 AM)
     Route: 048
     Dates: start: 20150926
  17. REVATIO [Suspect]
     Active Substance: SILDENAFIL CITRATE
     Indication: CARDIAC DISORDER
     Dosage: UNK
     Dates: start: 2007, end: 20150704
  18. ACETAMINOPHEN. [Concomitant]
     Active Substance: ACETAMINOPHEN
     Indication: PAIN
     Dosage: 650 MG, AS NEEDED, (EVERY 4 HOURS )
     Route: 048
     Dates: start: 20150925
  19. DOCUSATE SODIUM. [Concomitant]
     Active Substance: DOCUSATE SODIUM
     Indication: CONSTIPATION
     Dosage: 10 ML, 2X/DAY, (10 AM, 6 PM)
     Route: 048
     Dates: start: 20151021

REACTIONS (4)
  - Myocardial infarction [Fatal]
  - Cerebrovascular accident [Unknown]
  - Product use issue [Unknown]
  - Respiratory disorder [Unknown]

NARRATIVE: CASE EVENT DATE: 2007
